FAERS Safety Report 11394064 (Version 1)
Quarter: 2015Q3

REPORT INFORMATION
  Report Type: Spontaneous
  Country: RO (occurrence: RO)
  Receive Date: 20150819
  Receipt Date: 20150819
  Transmission Date: 20151125
  Serious: Yes (Death, Other)
  Sender: FDA-Public Use
  Company Number: PHHY2015RO099081

PATIENT
  Age: 59 Year
  Sex: Female

DRUGS (1)
  1. IMATINIB [Suspect]
     Active Substance: IMATINIB
     Indication: NEUROENDOCRINE CARCINOMA METASTATIC
     Dosage: 800 MG, UNK
     Route: 065

REACTIONS (3)
  - Condition aggravated [Fatal]
  - Metastases to spleen [Unknown]
  - Neuroendocrine carcinoma metastatic [Fatal]
